FAERS Safety Report 7993717-3 (Version None)
Quarter: 2011Q4

REPORT INFORMATION
  Report Type: 
  Country: None (occurrence: None)
  Receive Date: 20111220
  Receipt Date: 20111208
  Transmission Date: 20120403
  Serious: Yes (Other)
  Sender: FDA-Public Use
  Company Number: US-RANBAXY-2011US-51091

PATIENT
  Age: 53 Year
  Sex: Male

DRUGS (2)
  1. CYCLOBENZAPRINE HCL [Suspect]
     Indication: BACK PAIN
     Dosage: UNK, UNK
     Route: 065
  2. HYDROCODONE/PARACETAMOL [ACETAMINOPHEN] [Concomitant]
     Indication: BACK PAIN
     Route: 065

REACTIONS (1)
  - NEUROLEPTIC MALIGNANT SYNDROME [None]
